FAERS Safety Report 6910699-3 (Version None)
Quarter: 2010Q3

REPORT INFORMATION
  Report Type: 
  Country: None (occurrence: None)
  Receive Date: 20100806
  Receipt Date: 20100728
  Transmission Date: 20110219
  Serious: Yes (Other)
  Sender: FDA-Public Use
  Company Number: US-PFIZER INC-2010095804

PATIENT
  Sex: Female
  Weight: 81.646 kg

DRUGS (11)
  1. GABAPENTIN [Suspect]
     Indication: NEUROPATHY PERIPHERAL
     Dosage: 300 MG, UNK
     Dates: start: 20100101, end: 20100101
  2. LIPITOR [Suspect]
     Indication: BLOOD CHOLESTEROL INCREASED
     Dosage: UNK
  3. GLIPIZIDE [Suspect]
     Indication: DIABETES MELLITUS
     Dosage: UNK
  4. CYMBALTA [Suspect]
     Indication: NEUROPATHY PERIPHERAL
     Dosage: 30 MG, UNK
     Dates: start: 20100101, end: 20100101
  5. BACLOFEN [Suspect]
     Indication: PARAESTHESIA
     Dosage: 10 MG, 2X/DAY
     Dates: start: 20100726, end: 20100727
  6. BACLOFEN [Suspect]
     Indication: MUSCLE TIGHTNESS
  7. METFORMIN [Concomitant]
  8. ATENOLOL [Concomitant]
  9. LISINOPRIL [Concomitant]
  10. NORVASC [Concomitant]
  11. HYDROCHLOROTHIAZIDE [Concomitant]

REACTIONS (5)
  - HYPOAESTHESIA [None]
  - MUSCLE DISORDER [None]
  - MUSCLE TIGHTNESS [None]
  - MYALGIA [None]
  - NEUROPATHY PERIPHERAL [None]
